FAERS Safety Report 18088260 (Version 2)
Quarter: 2020Q3

REPORT INFORMATION
  Report Type: Report from Study
  Country: US (occurrence: US)
  Receive Date: 20200729
  Receipt Date: 20200917
  Transmission Date: 20201103
  Serious: No
  Sender: FDA-Public Use
  Company Number: NVSC2020US207190

PATIENT
  Sex: Female

DRUGS (2)
  1. COSENTYX [Suspect]
     Active Substance: SECUKINUMAB
     Indication: PSORIASIS
     Dosage: 300 MG, QW (SUBCUTANEOUS, BENEATH THE SKIN, USUALLY VIA INJECTION)
     Route: 058
     Dates: start: 20200625
  2. COSENTYX [Suspect]
     Active Substance: SECUKINUMAB
     Dosage: 300 MG, QW (SUBCUTANEOUS, BENEATH THE SKIN, USUALLY VIA INJECTION)
     Route: 058
     Dates: start: 20200709

REACTIONS (2)
  - Decreased appetite [Unknown]
  - Headache [Unknown]
